FAERS Safety Report 13853109 (Version 2)
Quarter: 2017Q3

REPORT INFORMATION
  Report Type: Spontaneous
  Country: CA (occurrence: CA)
  Receive Date: 20170810
  Receipt Date: 20170822
  Transmission Date: 20171127
  Serious: Yes (Other)
  Sender: FDA-Public Use
  Company Number: CA-AUROBINDO-AUR-APL-2017-38712

PATIENT
  Age: 84 Year
  Sex: Female

DRUGS (21)
  1. TRAZODONE                          /00447702/ [Suspect]
     Active Substance: TRAZODONE HYDROCHLORIDE
     Indication: INSOMNIA
     Dosage: 50 MG, ONCE A DAY
     Route: 048
  2. METOCLOPRAMIDE. [Suspect]
     Active Substance: METOCLOPRAMIDE
     Indication: DIVERTICULITIS
     Dosage: 10 MG, BID
     Route: 065
  3. MIRTAZAPINE TABLET [Suspect]
     Active Substance: MIRTAZAPINE
     Indication: DEPRESSED MOOD
     Dosage: 7.5 MG, ONCE A DAY
     Route: 065
  4. BISOPROLOL                         /00802602/ [Suspect]
     Active Substance: BISOPROLOL
     Indication: PRODUCT USED FOR UNKNOWN INDICATION
     Dosage: 1.25 MG, ONCE A DAY
     Route: 065
  5. BETAHISTINE [Suspect]
     Active Substance: BETAHISTINE
     Dosage: 8 MG, BID
     Route: 065
  6. CITALOPRAM [Suspect]
     Active Substance: CITALOPRAM HYDROBROMIDE
     Indication: DEPRESSED MOOD
     Dosage: 5 MG, ONCE A DAY
     Route: 065
  7. ROSUVASTATIN TABLETS 20 MG [Suspect]
     Active Substance: ROSUVASTATIN
     Indication: HAEMORRHAGIC STROKE
     Route: 065
  8. TRAZODONE                          /00447702/ [Suspect]
     Active Substance: TRAZODONE HYDROCHLORIDE
     Dosage: 25 MG, UNK
     Route: 065
  9. TIMOLOL. [Suspect]
     Active Substance: TIMOLOL
     Indication: GLAUCOMA
     Dosage: UNK, TWO TIMES A DAY
     Route: 065
  10. LEVOTHYROXINE SODIUM. [Suspect]
     Active Substance: LEVOTHYROXINE SODIUM
     Indication: HYPOTHYROIDISM
     Dosage: 0.05 MG, ONCE A DAY
     Route: 065
  11. BETAHISTINE [Suspect]
     Active Substance: BETAHISTINE
     Dosage: 8 MG, UNK
     Route: 065
  12. RISEDRONATE [Suspect]
     Active Substance: RISEDRONATE SODIUM
     Indication: OSTEOPOROSIS
     Dosage: 150 MG, ONCE A DAY
     Route: 065
  13. RISEDRONATE [Suspect]
     Active Substance: RISEDRONATE SODIUM
     Dosage: 150 MG, UNK
  14. DIMENHYDRINATE. [Suspect]
     Active Substance: DIMENHYDRINATE
     Indication: NAUSEA
     Dosage: 50 MG, UNK
     Route: 065
  15. CETIRIZINE                         /00884302/ [Suspect]
     Active Substance: CETIRIZINE HYDROCHLORIDE
     Indication: EYE PRURITUS
     Dosage: 20 MG, ONCE A DAY
     Route: 065
  16. LEVODOPA-CARBIDOPA [Suspect]
     Active Substance: CARBIDOPA\LEVODOPA
     Indication: PARKINSON^S DISEASE
     Dosage: UNK, 3 TIMES A DAY
     Route: 065
  17. BETAHISTINE [Suspect]
     Active Substance: BETAHISTINE
     Indication: VERTIGO
     Dosage: 8 MG, 2/WEEK
     Route: 065
  18. CANDESARTAN 4 MG [Suspect]
     Active Substance: CANDESARTAN
     Indication: HYPERTENSION
     Dosage: 4 MG, ONCE A DAY
     Route: 065
  19. PANTOPRAZOLE 40MG [Suspect]
     Active Substance: PANTOPRAZOLE SODIUM
     Indication: NAUSEA
     Dosage: 40 MG, ONCE A DAY
     Route: 048
  20. TRAZODONE                          /00447702/ [Suspect]
     Active Substance: TRAZODONE HYDROCHLORIDE
     Dosage: 50 MG, UNK
     Route: 065
  21. VITAMIN D                          /00107901/ [Suspect]
     Active Substance: ERGOCALCIFEROL
     Indication: OSTEOPOROSIS
     Dosage: 1000 IU, ONCE A DAY
     Route: 065

REACTIONS (20)
  - Fall [Not Recovered/Not Resolved]
  - Fatigue [Not Recovered/Not Resolved]
  - Drug ineffective [Not Recovered/Not Resolved]
  - Lacrimation increased [Not Recovered/Not Resolved]
  - Constipation [Not Recovered/Not Resolved]
  - Hypotension [Not Recovered/Not Resolved]
  - Vertigo [Not Recovered/Not Resolved]
  - Dizziness [Not Recovered/Not Resolved]
  - Condition aggravated [Not Recovered/Not Resolved]
  - Depressed mood [Not Recovered/Not Resolved]
  - Abdominal distension [Not Recovered/Not Resolved]
  - Decreased appetite [Not Recovered/Not Resolved]
  - Nausea [Not Recovered/Not Resolved]
  - Parkinson^s disease [Not Recovered/Not Resolved]
  - Hypersensitivity [Not Recovered/Not Resolved]
  - Vitamin B12 decreased [Not Recovered/Not Resolved]
  - Loss of personal independence in daily activities [Not Recovered/Not Resolved]
  - Vomiting [Not Recovered/Not Resolved]
  - Eye pruritus [Not Recovered/Not Resolved]
  - Dry mouth [Not Recovered/Not Resolved]
